FAERS Safety Report 12124315 (Version 5)
Quarter: 2017Q3

REPORT INFORMATION
  Report Type: Spontaneous
  Country: IT (occurrence: IT)
  Receive Date: 20160229
  Receipt Date: 20170912
  Transmission Date: 20171127
  Serious: Yes (Hospitalization, Other)
  Sender: FDA-Public Use
  Company Number: IT-BIOGEN-2015BI109177

PATIENT
  Age: 48 Year
  Sex: Male
  Weight: 85 kg

DRUGS (2)
  1. TYSABRI [Interacting]
     Active Substance: NATALIZUMAB
     Route: 065
     Dates: start: 200802
  2. TYSABRI [Suspect]
     Active Substance: NATALIZUMAB
     Indication: RELAPSING-REMITTING MULTIPLE SCLEROSIS
     Route: 042
     Dates: start: 20080101, end: 20150609

REACTIONS (2)
  - Progressive multifocal leukoencephalopathy [Recovered/Resolved with Sequelae]
  - Immune reconstitution inflammatory syndrome [Recovered/Resolved with Sequelae]

NARRATIVE: CASE EVENT DATE: 20150626
